FAERS Safety Report 7484530-4 (Version None)
Quarter: 2011Q2

REPORT INFORMATION
  Report Type: 
  Country: None (occurrence: None)
  Receive Date: 20110517
  Receipt Date: 20110509
  Transmission Date: 20111010
  Serious: No
  Sender: FDA-Public Use
  Company Number: US-BIOGENIDEC-2011BI016870

PATIENT
  Age: 51 Year
  Sex: Female

DRUGS (2)
  1. TYSABRI [Suspect]
     Indication: MULTIPLE SCLEROSIS
     Route: 042
     Dates: start: 20100430
  2. TYSABRI [Suspect]
     Route: 042
     Dates: start: 20090803, end: 20091118

REACTIONS (7)
  - DEPRESSION [None]
  - PAIN IN EXTREMITY [None]
  - NECK PAIN [None]
  - HEADACHE [None]
  - FATIGUE [None]
  - MUSCULOSKELETAL PAIN [None]
  - FORMICATION [None]
